FAERS Safety Report 4642215-3 (Version None)
Quarter: 2005Q2

REPORT INFORMATION
  Report Type: 
  Country: None (occurrence: None)
  Receive Date: 20050420
  Receipt Date: 20050407
  Transmission Date: 20051028
  Serious: Yes (Other)
  Sender: FDA-Public Use
  Company Number: 2005058784

PATIENT
  Sex: Female

DRUGS (2)
  1. CYTOTEC [Suspect]
     Indication: ABORTION INDUCED
     Dosage: 400 MCG (200 MG, 2  IN 1 D), ORAL
     Route: 048
  2. MIFEPRISTONE (MIFEPRISTONE) [Suspect]
     Indication: ABORTION INDUCED
     Dosage: 200 MG (200 MG, 1 IN 1 D), ORAL
     Route: 048

REACTIONS (2)
  - DRUG EXPOSURE DURING PREGNANCY [None]
  - INDUCED ABORTION FAILED [None]
